FAERS Safety Report 5013684-4 (Version None)
Quarter: 2006Q2

REPORT INFORMATION
  Report Type: 
  Country: None (occurrence: None)
  Receive Date: 20060525
  Receipt Date: 20060515
  Transmission Date: 20061013
  Serious: Yes (Death, Other)
  Sender: FDA-Public Use
  Company Number: 163-20785-05090051

PATIENT
  Age: 80 Year
  Sex: Female

DRUGS (1)
  1. THALOMID [Suspect]
     Indication: MULTIPLE MYELOMA
     Dosage: 50 MG, DAILY; ORAL
     Route: 048
     Dates: start: 20050420, end: 20050708

REACTIONS (3)
  - DIALYSIS [None]
  - DISEASE PROGRESSION [None]
  - INFLUENZA [None]
